FAERS Safety Report 10881640 (Version 3)
Quarter: 2015Q2

REPORT INFORMATION
  Report Type: Report from Study
  Country: US (occurrence: US)
  Receive Date: 20150303
  Receipt Date: 20150428
  Transmission Date: 20150821
  Serious: Yes (Other)
  Sender: FDA-Public Use
  Company Number: US-SA-2015SA024287

PATIENT
  Age: 72 Year
  Sex: Female

DRUGS (8)
  1. LOSARTAN [Concomitant]
     Active Substance: LOSARTAN
  2. METFORMIN [Concomitant]
     Active Substance: METFORMIN HYDROCHLORIDE
  3. AMLODIPINE [Concomitant]
     Active Substance: AMLODIPINE BESYLATE
  4. LANTUS [Suspect]
     Active Substance: INSULIN GLARGINE
     Indication: DIABETES MELLITUS
     Dosage: VIAL
     Route: 065
     Dates: end: 2014
  5. LANTUS SOLOSTAR [Suspect]
     Active Substance: INSULIN GLARGINE
     Indication: TYPE 2 DIABETES MELLITUS
     Dosage: SOLOSTAR PENS DOSE:24 UNIT(S)
     Route: 065
     Dates: start: 2014
  6. ASPIRIN. [Concomitant]
     Active Substance: ASPIRIN
  7. SOLOSTAR [Concomitant]
     Active Substance: DEVICE
     Indication: TYPE 2 DIABETES MELLITUS
     Dates: start: 2014
  8. HYDROCHLOROTHIAZIDE. [Concomitant]
     Active Substance: HYDROCHLOROTHIAZIDE

REACTIONS (7)
  - Eye operation [Unknown]
  - Blood glucose decreased [Unknown]
  - Abdominal pain upper [Not Recovered/Not Resolved]
  - Visual impairment [Not Recovered/Not Resolved]
  - Arthralgia [Not Recovered/Not Resolved]
  - Retinal haemorrhage [Unknown]
  - Malaise [Unknown]

NARRATIVE: CASE EVENT DATE: 20140515
